FAERS Safety Report 10328387 (Version 2)
Quarter: 2014Q3

REPORT INFORMATION
  Report Type: Spontaneous
  Country: US (occurrence: US)
  Receive Date: 20140721
  Receipt Date: 20140808
  Transmission Date: 20150326
  Serious: Yes (Hospitalization)
  Sender: FDA-Public Use
  Company Number: US-BAYER-2014-107895

PATIENT
  Age: 42 Year
  Sex: Female

DRUGS (3)
  1. YASMIN [Suspect]
     Active Substance: DROSPIRENONE\ETHINYL ESTRADIOL
     Dosage: UNK
     Dates: start: 200711, end: 200903
  2. FIORINAL [ACETYLSALICYLIC ACID,BUTALBITAL,CAFFEINE,PHENACETIN] [Concomitant]
     Indication: HEADACHE
     Dosage: 1 TO 2 CAPSULE EVERY 2 TO 4 HRS
     Route: 048
     Dates: start: 20080623, end: 20120824
  3. MAXALT [Concomitant]
     Active Substance: RIZATRIPTAN BENZOATE
     Indication: HEADACHE
     Dosage: 10 MG,ONE TABLET 2 HRS
     Route: 048
     Dates: start: 20080623, end: 20131113

REACTIONS (7)
  - Pain [None]
  - Emotional distress [None]
  - General physical health deterioration [Recovered/Resolved]
  - Pain [Recovered/Resolved]
  - Deep vein thrombosis [Recovered/Resolved]
  - Anxiety [None]
  - Injury [Recovered/Resolved]

NARRATIVE: CASE EVENT DATE: 20090330
